FAERS Safety Report 22033733 (Version 1)
Quarter: 2023Q1

REPORT INFORMATION
  Report Type: Spontaneous
  Country: ES (occurrence: ES)
  Receive Date: 20230224
  Receipt Date: 20230224
  Transmission Date: 20230418
  Serious: Yes (Other)
  Sender: FDA-Public Use
  Company Number: None

PATIENT
  Age: 80 Year
  Sex: Male

DRUGS (2)
  1. IRINOTECAN [Suspect]
     Active Substance: IRINOTECAN
     Indication: Colorectal cancer recurrent
     Dosage: 243 MILLIGRAMS (135 MG/M2) 75% OF THE TOTAL
     Dates: start: 20220220
  2. CETUXIMAB [Suspect]
     Active Substance: CETUXIMAB
     Indication: Recurrent N-ras mutation-positive colorectal carcinoma
     Dosage: 5MG/ML 900 MILLIGRAMS (500MG/M2), AFTER 80% DOSE REDUCTION OF THE TOTAL: 450 MILLIGRAMS (250MG/M2)
     Dates: start: 20220218

REACTIONS (1)
  - Palmar-plantar erythrodysaesthesia syndrome [Recovering/Resolving]

NARRATIVE: CASE EVENT DATE: 20220322
